FAERS Safety Report 19751892 (Version 2)
Quarter: 2021Q4

REPORT INFORMATION
  Report Type: Other
  Country: JP (occurrence: JP)
  Receive Date: 20210826
  Receipt Date: 20211011
  Transmission Date: 20220303
  Serious: Yes (Hospitalization)
  Sender: FDA-Public Use
  Company Number: JP-CHUGAI-A2021005392ROCHE

PATIENT
  Age: 55 Year
  Sex: Female
  Weight: 53 kg

DRUGS (7)
  1. SATRALIZUMAB [Suspect]
     Active Substance: SATRALIZUMAB
     Indication: Neuromyelitis optica spectrum disorder
     Dosage: DOSAGE IS UNCERTAIN.
     Route: 058
     Dates: start: 20210118
  2. SATRALIZUMAB [Suspect]
     Active Substance: SATRALIZUMAB
     Dosage: DOSAGE IS UNCERTAIN.
     Route: 058
     Dates: start: 20210510
  3. SATRALIZUMAB [Suspect]
     Active Substance: SATRALIZUMAB
     Dosage: DOSAGE IS UNCERTAIN.
     Route: 058
     Dates: start: 20210705
  4. PREDNISOLONE SODIUM PHOSPHATE [Suspect]
     Active Substance: PREDNISOLONE SODIUM PHOSPHATE
     Indication: Neuromyelitis optica spectrum disorder
     Dosage: 17.5MG/DAY
     Route: 048
     Dates: start: 20210118
  5. PREDNISOLONE SODIUM PHOSPHATE [Suspect]
     Active Substance: PREDNISOLONE SODIUM PHOSPHATE
     Dosage: 7.5MG/DAY
     Route: 048
  6. PREDNISOLONE SODIUM PHOSPHATE [Suspect]
     Active Substance: PREDNISOLONE SODIUM PHOSPHATE
     Dosage: UNK
     Route: 048
     Dates: end: 20210718
  7. PREDNISOLONE SODIUM PHOSPHATE [Suspect]
     Active Substance: PREDNISOLONE SODIUM PHOSPHATE
     Dosage: UNK
     Route: 048

REACTIONS (2)
  - Abscess jaw [Recovered/Resolved]
  - Dental caries [Recovered/Resolved]

NARRATIVE: CASE EVENT DATE: 20210131
